FAERS Safety Report 5143534-7 (Version None)
Quarter: 2006Q4

REPORT INFORMATION
  Report Type: 
  Country: None (occurrence: None)
  Receive Date: 20061030
  Receipt Date: 20060927
  Transmission Date: 20070319
  Serious: Yes (Hospitalization, Other)
  Sender: FDA-Public Use
  Company Number: 2006128798

PATIENT
  Age: 47 Year
  Sex: Male

DRUGS (21)
  1. NELFINAVIR MESILATE (NELFINAVIR MESILATE) [Suspect]
     Indication: HIV INFECTION
     Dosage: 750 MG (250 MG, 3 IN 1 D), ORAL
     Route: 048
     Dates: start: 19980806, end: 20050810
  2. SAQUINAVIR (SAQUINAVIR) [Suspect]
     Indication: HIV INFECTION
     Dosage: 600 MG (FREQUENCY: 3 X PER DAY), ORAL
     Route: 048
     Dates: start: 19970515, end: 20050810
  3. ZALCITABINE (ZALCITABINE) [Suspect]
     Indication: HIV INFECTION
     Dosage: 2.25 MG, ORAL
     Route: 048
     Dates: start: 19960613, end: 19961113
  4. DICLOFENAC SODIUM [Suspect]
     Indication: OSTEOARTHRITIS
     Dosage: 37.5 MG (2 IN 1 D), ORAL
     Route: 048
     Dates: start: 19980806, end: 19980907
  5. INDINIVIR SULFATE [Suspect]
     Indication: HIV INFECTION
     Dosage: 2400 MG, ORAL
     Route: 048
     Dates: start: 19960725, end: 19970514
  6. LAMIVUDINE [Suspect]
     Indication: HIV INFECTION
     Dosage: 150 MG (2 IN 1 D), ORAL
     Route: 048
     Dates: start: 19970515, end: 20050810
  7. STAVUDINE [Suspect]
     Indication: HIV INFECTION
     Dosage: 30 MG (2 IN 1 D), ORAL
     Route: 048
     Dates: start: 19971101, end: 20050810
  8. SULFAMETHOXAZOLE + TRIMETHOPRIM [Concomitant]
  9. DIFLUCAN [Concomitant]
  10. ZOVIRAX [Concomitant]
  11. EURODIN (ESTAZOLAM) [Concomitant]
  12. LOPERAMIDE HCL [Concomitant]
  13. RETROVIR [Concomitant]
  14. PROTHROMBIN (FACTOR IX) [Concomitant]
  15. NOVOSEVEN [Concomitant]
  16. LEPETAN (BUPRENORPHINE HYDROCHLORIDE) [Concomitant]
  17. PROPLEX [Concomitant]
  18. PENTAZOCINE LACTATE [Concomitant]
  19. LOXONIN (LOXOPROFEN SODIUM) [Concomitant]
  20. TRANSAMIN (TRANEXAMIC ACID) [Concomitant]
  21. FEIBA [Concomitant]

REACTIONS (21)
  - ABDOMINAL PAIN [None]
  - ACTIVATED PARTIAL THROMBOPLASTIN TIME PROLONGED [None]
  - DIARRHOEA [None]
  - DIZZINESS [None]
  - EOSINOPHIL PERCENTAGE INCREASED [None]
  - FIBRIN DEGRADATION PRODUCTS INCREASED [None]
  - GASTROINTESTINAL HAEMORRHAGE [None]
  - GINGIVAL BLEEDING [None]
  - HAEMARTHROSIS [None]
  - HAEMATOCRIT DECREASED [None]
  - HAEMOBILIA [None]
  - HAEMOGLOBIN DECREASED [None]
  - HAEMORRHAGE [None]
  - HAEMORRHAGE SUBCUTANEOUS [None]
  - HEPATIC NEOPLASM MALIGNANT [None]
  - HYPOAESTHESIA [None]
  - IMPAIRED DRIVING ABILITY [None]
  - INJECTION SITE HAEMORRHAGE [None]
  - NEUROPATHY PERIPHERAL [None]
  - OSTEONECROSIS [None]
  - PLATELET COUNT DECREASED [None]
